FAERS Safety Report 8305851-9 (Version None)
Quarter: 2012Q1

REPORT INFORMATION
  Report Type: 
  Country: None (occurrence: None)
  Receive Date: 20120326
  Receipt Date: 20120117
  Transmission Date: 20120608
  Serious: Yes (Other)
  Sender: FDA-Public Use
  Company Number: PHEH2012US001717

PATIENT
  Age: 43 Year
  Sex: Male
  Weight: 95.2 kg

DRUGS (1)
  1. TASIGNA [Suspect]
     Indication: LEUKAEMIA
     Dosage: 300 MG, TWICE A DAILY, ORAL
     Route: 048
     Dates: start: 20110301

REACTIONS (1)
  - HAEMATOCHEZIA [None]
